FAERS Safety Report 24028754 (Version 1)
Quarter: 2024Q2

REPORT INFORMATION
  Report Type: Spontaneous
  Country: US (occurrence: None)
  Receive Date: 20240628
  Receipt Date: 20240628
  Transmission Date: 20240715
  Serious: Yes (Death)
  Sender: FDA-Public Use
  Company Number: None

PATIENT
  Age: 73 Year
  Sex: Female

DRUGS (1)
  1. CAPECITABINE [Suspect]
     Active Substance: CAPECITABINE
     Indication: Colon cancer
     Dosage: 100MG TWICE DAILY ORAL
     Route: 048
     Dates: start: 202404

REACTIONS (3)
  - Hypoxia [None]
  - Acute kidney injury [None]
  - Acute hepatic failure [None]

NARRATIVE: CASE EVENT DATE: 20240611
